FAERS Safety Report 16116382 (Version 1)
Quarter: 2019Q1

REPORT INFORMATION
  Report Type: Spontaneous
  Country: FR (occurrence: FR)
  Receive Date: 20190326
  Receipt Date: 20190326
  Transmission Date: 20190418
  Serious: Yes (Other)
  Sender: FDA-Public Use
  Company Number: FR-AUROBINDO-AUR-APL-2017-47781

PATIENT

DRUGS (14)
  1. 5 FU [Suspect]
     Active Substance: FLUOROURACIL
     Dosage: 308 MG, UNK
     Route: 040
     Dates: start: 20170626
  2. 5 FU [Suspect]
     Active Substance: FLUOROURACIL
     Dosage: 3744 MG, UNK
     Route: 041
     Dates: start: 20160926
  3. 5 FU [Suspect]
     Active Substance: FLUOROURACIL
     Dosage: 3696 MG, UNK
     Route: 041
     Dates: start: 20170626
  4. OXALIPLATIN. [Suspect]
     Active Substance: OXALIPLATIN
     Indication: COLORECTAL CANCER METASTATIC
     Dosage: 106.08 MG, UNK
     Route: 065
     Dates: start: 20160926
  5. LIORESAL [Concomitant]
     Active Substance: BACLOFEN
     Indication: PRODUCT USED FOR UNKNOWN INDICATION
     Dosage: 60 MILLIGRAM, ONCE A DAY
     Route: 048
  6. TANAKAN [Concomitant]
     Active Substance: GINKGO
     Indication: PRODUCT USED FOR UNKNOWN INDICATION
     Dosage: 40 MILLIGRAM, ONCE A DAY
     Route: 048
  7. CYANOCOBALAMIN. [Concomitant]
     Active Substance: CYANOCOBALAMIN
     Indication: PRODUCT USED FOR UNKNOWN INDICATION
     Dosage: UNK UNK, ONCE A DAY
     Route: 048
  8. CALCIUM LEVOFOLINATE [Suspect]
     Active Substance: LEVOLEUCOVORIN CALCIUM
     Indication: COLORECTAL CANCER METASTATIC
     Dosage: 308 MILLIGRAM
     Route: 065
     Dates: start: 20170626
  9. AVASTIN [Suspect]
     Active Substance: BEVACIZUMAB
     Indication: COLORECTAL CANCER METASTATIC
     Dosage: 275 MILLIGRAM
     Route: 065
     Dates: start: 20160926
  10. AVASTIN [Suspect]
     Active Substance: BEVACIZUMAB
     Dosage: 265 MG, UNK
     Route: 065
     Dates: start: 20170626
  11. LERCANIDIPINE [Concomitant]
     Active Substance: LERCANIDIPINE
     Indication: HYPERTENSION
     Dosage: 5 MILLIGRAM
     Route: 048
  12. CALCIUM LEVOFOLINATE [Suspect]
     Active Substance: LEVOLEUCOVORIN CALCIUM
     Dosage: 312 MG, UNK
     Route: 065
     Dates: start: 20160926
  13. 5 FU [Suspect]
     Active Substance: FLUOROURACIL
     Indication: COLORECTAL CANCER METASTATIC
     Dosage: 624 MG, UNK
     Route: 040
     Dates: start: 20160926
  14. 5 FU [Suspect]
     Active Substance: FLUOROURACIL
     Dosage: 616 UNK
     Route: 040

REACTIONS (2)
  - Pulmonary embolism [Not Recovered/Not Resolved]
  - Hypertension [Recovered/Resolved]

NARRATIVE: CASE EVENT DATE: 20161118
